FAERS Safety Report 7624954-5 (Version None)
Quarter: 2011Q3

REPORT INFORMATION
  Report Type: 
  Country: None (occurrence: None)
  Receive Date: 20110720
  Receipt Date: 20110712
  Transmission Date: 20111222
  Serious: Yes (Hospitalization)
  Sender: FDA-Public Use
  Company Number: DE-AMGEN-DEUNI2011035478

PATIENT
  Age: 58 Year
  Sex: Female
  Weight: 72.4 kg

DRUGS (8)
  1. SORAFENIB [Concomitant]
     Dosage: UNK UNK, BLINDED
     Route: 048
     Dates: start: 20110524, end: 20110602
  2. NEULASTA [Suspect]
     Indication: PRODUCT USED FOR UNKNOWN INDICATION
  3. DARBEPOETIN ALFA [Suspect]
     Indication: PRODUCT USED FOR UNKNOWN INDICATION
  4. NEUPOGEN [Suspect]
     Indication: PRODUCT USED FOR UNKNOWN INDICATION
  5. ERYPO [Concomitant]
     Dosage: UNK UNK, QD
     Route: 058
     Dates: start: 20110307
  6. TOPOTECAN [Concomitant]
     Dosage: 2.2 MG, QD
     Route: 042
     Dates: start: 20110502, end: 20110506
  7. IBUPROFEN [Concomitant]
     Indication: PAIN
     Dosage: 600 MG, QD
     Route: 048
     Dates: start: 20110530
  8. ALOXI [Concomitant]
     Indication: PROPHYLAXIS OF NAUSEA AND VOMITING
     Dosage: 250 A?G, QD
     Route: 042
     Dates: start: 20110502, end: 20110506

REACTIONS (3)
  - DEPRESSED LEVEL OF CONSCIOUSNESS [None]
  - NAUSEA [None]
  - VOMITING [None]
